FAERS Safety Report 5518923-9 (Version None)
Quarter: 2007Q4

REPORT INFORMATION
  Report Type: 
  Country: None (occurrence: None)
  Receive Date: 20071114
  Receipt Date: 20071114
  Transmission Date: 20080405
  Serious: Yes (Other)
  Sender: FDA-Public Use
  Company Number: None

PATIENT
  Age: 57 Year
  Sex: Female
  Weight: 81.1939 kg

DRUGS (2)
  1. PAROXETINE [Suspect]
     Indication: DEPRESSION
     Dosage: 10 MG 1 X DAY PO
     Route: 048
     Dates: start: 20070808, end: 20071020
  2. PAROXETINE [Suspect]
     Indication: INSOMNIA
     Dosage: 10 MG 1 X DAY PO
     Route: 048
     Dates: start: 20070808, end: 20071020

REACTIONS (16)
  - ABNORMAL BEHAVIOUR [None]
  - AGITATION [None]
  - ANGER [None]
  - ARTHRALGIA [None]
  - BACK PAIN [None]
  - FEELING HOT [None]
  - FLIGHT OF IDEAS [None]
  - HYPERHIDROSIS [None]
  - INSOMNIA [None]
  - IRRITABILITY [None]
  - MENTAL DISORDER [None]
  - MUSCULOSKELETAL PAIN [None]
  - NECK PAIN [None]
  - NIGHTMARE [None]
  - PAIN [None]
  - RESTLESSNESS [None]
